FAERS Safety Report 6291119-1 (Version None)
Quarter: 2009Q3

REPORT INFORMATION
  Report Type: 
  Country: None (occurrence: None)
  Receive Date: 20090730
  Receipt Date: 20090721
  Transmission Date: 20100115
  Serious: Yes (Death, Hospitalization)
  Sender: FDA-Public Use
  Company Number: A0799202A

PATIENT
  Age: 61 Year
  Sex: Male

DRUGS (1)
  1. AVANDAMET [Suspect]
     Indication: DIABETES MELLITUS
     Route: 048
     Dates: start: 20040301, end: 20050601

REACTIONS (2)
  - ACUTE MYOCARDIAL INFARCTION [None]
  - CARDIO-RESPIRATORY ARREST [None]
